FAERS Safety Report 25883155 (Version 3)
Quarter: 2025Q4

REPORT INFORMATION
  Report Type: Report from Study
  Country: JP (occurrence: JP)
  Receive Date: 20251006
  Receipt Date: 20251203
  Transmission Date: 20260117
  Serious: Yes (Death, Disabling)
  Sender: ALEXION PHARMACEUTICALS
  Company Number: JP-ASTRAZENECA-250035288_064320_P_1

PATIENT
  Age: 83 Year
  Sex: Male
  Weight: 67 kg

DRUGS (7)
  1. ANDEXANET ALFA [Suspect]
     Active Substance: ANDEXANET ALFA
     Indication: Gingival bleeding
     Dosage: 880 MILLIGRAM
     Dates: start: 20221014, end: 20221014
  2. ANDEXANET ALFA [Suspect]
     Active Substance: ANDEXANET ALFA
     Indication: Cystitis haemorrhagic
  3. ANDEXANET ALFA [Suspect]
     Active Substance: ANDEXANET ALFA
     Indication: Emphysematous cystitis
  4. EDOXABAN TOSYLATE [Concomitant]
     Active Substance: EDOXABAN TOSYLATE
     Indication: Ischaemic stroke
  5. EDOXABAN TOSYLATE [Concomitant]
     Active Substance: EDOXABAN TOSYLATE
     Dates: start: 20221104
  6. MEROPENEM [Concomitant]
     Active Substance: MEROPENEM
     Route: 065
     Dates: start: 20221015, end: 20221028
  7. SILODOSIN [Concomitant]
     Active Substance: SILODOSIN
     Dates: start: 20221020, end: 20221107

REACTIONS (2)
  - Cerebral infarction [Not Recovered/Not Resolved]
  - Endocarditis [Fatal]

NARRATIVE: CASE EVENT DATE: 20221020
